FAERS Safety Report 4505968-0 (Version None)
Quarter: 2004Q4

REPORT INFORMATION
  Report Type: 
  Country: None (occurrence: None)
  Receive Date: 20041119
  Receipt Date: 20041116
  Transmission Date: 20050328
  Serious: Yes (Other)
  Sender: FDA-Public Use
  Company Number: PHBS2004BR15437

PATIENT
  Sex: Female

DRUGS (5)
  1. FORASEQ [Suspect]
     Indication: BRONCHITIS
     Dosage: 2 CAPS/DAY
  2. SIMVASTATIN [Concomitant]
     Indication: BLOOD CHOLESTEROL INCREASED
     Dosage: 20 MG/DAY
     Route: 048
  3. HYDROCHLOROTHIAZIDE [Concomitant]
     Indication: DIURETIC THERAPY
     Dosage: 50 MG/DAY
     Route: 048
  4. PURAN T4 [Concomitant]
     Indication: THYROID DISORDER
     Dosage: 75 MG/DAY
  5. CAPTOPRIL [Concomitant]
     Indication: HYPERTENSION
     Dosage: 25 MG/DAY
     Route: 048

REACTIONS (1)
  - FACIAL PALSY [None]
